FAERS Safety Report 14161976 (Version 1)
Quarter: 2017Q4

REPORT INFORMATION
  Report Type: Spontaneous
  Country: GB (occurrence: GB)
  Receive Date: 20171106
  Receipt Date: 20171106
  Transmission Date: 20180321
  Serious: Yes (Death, Other)
  Sender: FDA-Public Use
  Company Number: GB-BAYER-2017-211400

PATIENT
  Age: 62 Year
  Sex: Male
  Weight: 70 kg

DRUGS (1)
  1. GADOVIST [Suspect]
     Active Substance: GADOBUTROL
     Indication: NUCLEAR MAGNETIC RESONANCE IMAGING
     Dosage: 7.5 ML, UNK
     Route: 042
     Dates: start: 20171018, end: 20171018

REACTIONS (5)
  - Contrast media reaction [Unknown]
  - Respiratory arrest [Unknown]
  - Unresponsive to stimuli [Unknown]
  - Death [Fatal]
  - Radial pulse abnormal [Unknown]

NARRATIVE: CASE EVENT DATE: 20171018
